FAERS Safety Report 25983239 (Version 1)
Quarter: 2025Q4

REPORT INFORMATION
  Report Type: Spontaneous
  Country: GB (occurrence: GB)
  Receive Date: 20251031
  Receipt Date: 20251031
  Transmission Date: 20260118
  Serious: Yes (Other)
  Sender: TEVA
  Company Number: None

PATIENT
  Age: 66 Year
  Sex: Female

DRUGS (3)
  1. PROPRANOLOL [Suspect]
     Active Substance: PROPRANOLOL HYDROCHLORIDE
     Indication: Adverse drug reaction
     Dosage: 80 MG DAY LATTERLY 10 MG DAY
     Route: 065
     Dates: start: 20101001, end: 20251010
  2. PROPRANOLOL [Suspect]
     Active Substance: PROPRANOLOL HYDROCHLORIDE
     Indication: Adverse drug reaction
     Dosage: 10MG DAILY, ORIGINALLY 80MG, ACCORD-UK
     Route: 065
     Dates: start: 20101001, end: 20251010
  3. ACETAMINOPHEN [Concomitant]
     Active Substance: ACETAMINOPHEN
     Indication: Adverse drug reaction

REACTIONS (1)
  - Loss of proprioception [Recovering/Resolving]

NARRATIVE: CASE EVENT DATE: 20120801
